FAERS Safety Report 7592275-5 (Version None)
Quarter: 2011Q3

REPORT INFORMATION
  Report Type: 
  Country: None (occurrence: None)
  Receive Date: 20110706
  Receipt Date: 20110627
  Transmission Date: 20111222
  Serious: Yes (Other)
  Sender: FDA-Public Use
  Company Number: US-JNJFOC-20110612135

PATIENT
  Sex: Female
  Weight: 74.84 kg

DRUGS (5)
  1. SYNTHROID [Concomitant]
     Indication: HYPOTHYROIDISM
     Route: 048
  2. ELMIRON [Concomitant]
     Indication: CYSTITIS INTERSTITIAL
     Route: 048
  3. METHOTREXATE [Concomitant]
     Indication: RHEUMATOID ARTHRITIS
     Route: 048
  4. SIMPONI [Suspect]
     Indication: RHEUMATOID ARTHRITIS
     Route: 058
  5. ATENOLOL [Concomitant]
     Indication: HEART RATE INCREASED
     Route: 048

REACTIONS (5)
  - DEVICE ISSUE [None]
  - DIVERTICULITIS [None]
  - DRUG DOSE OMISSION [None]
  - HYPERTENSION [None]
  - BLOOD CHOLESTEROL INCREASED [None]
